FAERS Safety Report 7319024-X (Version None)
Quarter: 2011Q1

REPORT INFORMATION
  Report Type: 
  Country: None (occurrence: None)
  Receive Date: 20110228
  Receipt Date: 20110217
  Transmission Date: 20110831
  Serious: Yes (Other)
  Sender: FDA-Public Use
  Company Number: SV-PFIZER INC-2011041568

PATIENT
  Sex: Male

DRUGS (1)
  1. PANTECTA [Suspect]
     Dosage: 40 MG, UNK

REACTIONS (1)
  - CEREBROVASCULAR ACCIDENT [None]
